FAERS Safety Report 4364763-6 (Version None)
Quarter: 2004Q2

REPORT INFORMATION
  Report Type: 
  Country: None (occurrence: None)
  Receive Date: 20040526
  Receipt Date: 20040430
  Transmission Date: 20050107
  Serious: Yes (Other)
  Sender: FDA-Public Use
  Company Number: PHRM2004FR01728

PATIENT
  Sex: Female
  Weight: 67 kg

DRUGS (6)
  1. CLOZAPINE [Suspect]
     Indication: BIPOLAR I DISORDER
     Dosage: 100 MG, DAILY
     Route: 048
  2. TERALITHE [Concomitant]
     Route: 065
  3. TENORMIN [Concomitant]
     Route: 065
  4. DEPAMIDE [Concomitant]
     Route: 065
  5. LEVOTHYROXINE SODIUM [Concomitant]
  6. DOLIPRANE [Concomitant]
     Route: 048

REACTIONS (2)
  - NEUTROPHIL COUNT ABNORMAL [None]
  - WHITE BLOOD CELL DISORDER [None]
